FAERS Safety Report 4557937-2 (Version None)
Quarter: 2005Q1

REPORT INFORMATION
  Report Type: 
  Country: None (occurrence: None)
  Receive Date: 20050121
  Receipt Date: 20040205
  Transmission Date: 20050727
  Serious: No
  Sender: FDA-Public Use
  Company Number: US-BRISTOL-MYERS SQUIBB COMPANY-12509709

PATIENT
  Sex: Female

DRUGS (2)
  1. SERZONE [Suspect]
     Route: 048
  2. DEXEDRINE [Concomitant]
     Indication: HEADACHE

REACTIONS (4)
  - ABDOMINAL PAIN [None]
  - BLOOD BILIRUBIN INCREASED [None]
  - RASH PRURITIC [None]
  - VOMITING [None]
